FAERS Safety Report 4341835-3 (Version None)
Quarter: 2004Q2

REPORT INFORMATION
  Report Type: 
  Country: None (occurrence: None)
  Receive Date: 20040415
  Receipt Date: 20040401
  Transmission Date: 20050107
  Serious: No
  Sender: FDA-Public Use
  Company Number: BRO-007194

PATIENT
  Age: 61 Year
  Sex: Male

DRUGS (5)
  1. IOPAMIDOL [Suspect]
     Indication: ANGINA PECTORIS
     Dosage: 150 ML INTRACORONARY
     Route: 022
     Dates: start: 20040209, end: 20040209
  2. ASPIRIN [Concomitant]
  3. TICLOPIDINE HCL [Concomitant]
  4. PRAVASTATIN [Concomitant]
  5. BANAN [Concomitant]

REACTIONS (9)
  - ANOREXIA [None]
  - COMA [None]
  - CONTRAST MEDIA REACTION [None]
  - CORONARY ARTERY OCCLUSION [None]
  - INAPPROPRIATE ANTIDIURETIC HORMONE SECRETION [None]
  - NAUSEA [None]
  - PYREXIA [None]
  - RENAL TUBULAR DISORDER [None]
  - VOMITING [None]
